FAERS Safety Report 21717508 (Version 1)
Quarter: 2022Q4

REPORT INFORMATION
  Report Type: Spontaneous
  Country: US (occurrence: None)
  Receive Date: 20221212
  Receipt Date: 20221212
  Transmission Date: 20230113
  Serious: Yes (Other)
  Sender: FDA-Public Use
  Company Number: None

PATIENT
  Age: 59 Year
  Sex: Male

DRUGS (1)
  1. HEPARIN [Suspect]
     Active Substance: HEPARIN SODIUM
     Indication: Therapeutic procedure
     Dosage: OTHER STRENGTH : 10,000 UNT/ML ;?
     Dates: start: 20221130, end: 20221130

REACTIONS (6)
  - Thrombocytopenia [None]
  - Blood pressure decreased [None]
  - Vascular graft [None]
  - Staphylococcal bacteraemia [None]
  - Heparin-induced thrombocytopenia [None]
  - Injection site haemorrhage [None]

NARRATIVE: CASE EVENT DATE: 20221202
